FAERS Safety Report 4309518-3 (Version None)
Quarter: 2004Q1

REPORT INFORMATION
  Report Type: 
  Country: None (occurrence: None)
  Receive Date: 20040302
  Receipt Date: 20040219
  Transmission Date: 20041129
  Serious: Yes (Other)
  Sender: FDA-Public Use
  Company Number: PHRM2004FR00955

PATIENT
  Sex: Female

DRUGS (3)
  1. ZOMETA [Suspect]
     Indication: OSTEOPOROSIS
     Route: 042
  2. RIVOTRIL [Concomitant]
  3. TOPALGIC ^HOUDE^ [Concomitant]

REACTIONS (1)
  - DELUSION [None]
